FAERS Safety Report 11689246 (Version 1)
Quarter: 2015Q4

REPORT INFORMATION
  Report Type: Spontaneous
  Country: KR (occurrence: KR)
  Receive Date: 20151102
  Receipt Date: 20151102
  Transmission Date: 20160304
  Serious: Yes (Other)
  Sender: FDA-Public Use
  Company Number: KR-009507513-1510KOR010803

PATIENT

DRUGS (1)
  1. TEMOZOLOMIDE. [Suspect]
     Active Substance: TEMOZOLOMIDE
     Indication: GLIOBLASTOMA
     Dosage: 75 MG/M2, FOR 5 DAYS EVERY 28 DAYS
     Route: 048

REACTIONS (6)
  - White blood cell disorder [Unknown]
  - Drug ineffective [Unknown]
  - Platelet disorder [Unknown]
  - White blood cell count decreased [Unknown]
  - Haemoglobin abnormal [Unknown]
  - Haemoglobin decreased [Unknown]
